FAERS Safety Report 19205993 (Version 1)
Quarter: 2021Q2

REPORT INFORMATION
  Report Type: Spontaneous
  Country: US (occurrence: US)
  Receive Date: 20210503
  Receipt Date: 20210503
  Transmission Date: 20210717
  Serious: Yes (Life-Threatening, Hospitalization)
  Sender: FDA-Public Use
  Company Number: None

PATIENT
  Age: 53 Year
  Sex: Male

DRUGS (3)
  1. MAYZENT [Concomitant]
     Active Substance: SIPONIMOD
     Dates: start: 20200630, end: 20201025
  2. MAYZENT [Suspect]
     Active Substance: SIPONIMOD
     Indication: MULTIPLE SCLEROSIS
     Dates: start: 20200630, end: 20201025
  3. AMPYRA [Suspect]
     Active Substance: DALFAMPRIDINE
     Dates: start: 20200630, end: 20201025

REACTIONS (1)
  - Cardiac arrest [None]

NARRATIVE: CASE EVENT DATE: 20201025
